FAERS Safety Report 8842430 (Version 2)
Quarter: 2012Q4

REPORT INFORMATION
  Report Type: Report from Study
  Country: BE (occurrence: DE)
  Receive Date: 20121016
  Receipt Date: 20121114
  Transmission Date: 20130627
  Serious: Yes (Other)
  Sender: FDA-Public Use
  Company Number: DE-MERCK-1210USA006297

PATIENT
  Age: 42 Year
  Sex: Male
  Weight: 79.5 kg

DRUGS (2)
  1. TEMOZOLOMIDE [Suspect]
     Dosage: 150 mg, UNK
     Route: 048
     Dates: start: 20081105, end: 20101021
  2. CARBAMAZEPINE [Concomitant]
     Indication: CONVULSION
     Dosage: 400 mg, bid
     Route: 048

REACTIONS (2)
  - Basal cell carcinoma [Recovered/Resolved]
  - Skin neoplasm excision [Recovered/Resolved]
